FAERS Safety Report 11358849 (Version 1)
Quarter: 2015Q3

REPORT INFORMATION
  Report Type: Spontaneous
  Country: US (occurrence: None)
  Receive Date: 20150807
  Receipt Date: 20150807
  Transmission Date: 20151125
  Serious: No
  Sender: FDA-Public Use
  Company Number: None

PATIENT
  Age: 56 Year
  Sex: Male

DRUGS (1)
  1. FENTANYL. [Suspect]
     Active Substance: FENTANYL
     Indication: PAIN
     Dosage: Q72H
     Route: 062
     Dates: start: 20150708, end: 20150722

REACTIONS (3)
  - Application site burn [None]
  - Product quality issue [None]
  - Application site reaction [None]

NARRATIVE: CASE EVENT DATE: 20150707
